FAERS Safety Report 5466314-1 (Version None)
Quarter: 2007Q3

REPORT INFORMATION
  Report Type: 
  Country: None (occurrence: None)
  Receive Date: 20070920
  Receipt Date: 20070907
  Transmission Date: 20080115
  Serious: Yes (Hospitalization)
  Sender: FDA-Public Use
  Company Number: 8026655

PATIENT
  Age: 68 Year
  Sex: Male

DRUGS (8)
  1. KEPPRA [Suspect]
     Indication: ASTROCYTOMA
     Dosage: 2000M G/D PO
     Route: 048
  2. KEPPRA [Suspect]
     Indication: PROPHYLAXIS
     Dosage: 2000M G/D PO
     Route: 048
  3. TEMOZOLOMIDE [Suspect]
     Indication: ASTROCYTOMA, LOW GRADE
     Dosage: PO
     Route: 048
     Dates: start: 20061023, end: 20070306
  4. FLOMAX [Concomitant]
  5. KAY CIEL DURA-TABS [Concomitant]
  6. LAMICTAL [Concomitant]
  7. WARFARIN SODIUM [Concomitant]
  8. ZOCOR [Concomitant]

REACTIONS (4)
  - CONFUSIONAL STATE [None]
  - CONVULSION [None]
  - HYPERGLYCAEMIA [None]
  - PANCYTOPENIA [None]
